FAERS Safety Report 5250254-7 (Version None)
Quarter: 2007Q1

REPORT INFORMATION
  Report Type: 
  Country: None (occurrence: None)
  Receive Date: 20070228
  Receipt Date: 20060308
  Transmission Date: 20070707
  Serious: No
  Sender: FDA-Public Use
  Company Number: US-GLAXOSMITHKLINE-A0596760A

PATIENT
  Age: 15 Year
  Sex: Male

DRUGS (6)
  1. LAMICTAL [Suspect]
     Indication: EPILEPSY
     Dosage: 175MG PER DAY
     Route: 048
     Dates: start: 20051205
  2. PREVACID [Concomitant]
  3. SINGULAIR [Concomitant]
  4. ALBUTEROL [Concomitant]
  5. TYLENOL [Concomitant]
  6. CLONIDINE [Concomitant]

REACTIONS (2)
  - ARTHROPATHY [None]
  - DYSPNOEA [None]
